FAERS Safety Report 6234590-3 (Version None)
Quarter: 2009Q2

REPORT INFORMATION
  Report Type: 
  Country: None (occurrence: None)
  Receive Date: 20090616
  Receipt Date: 20090616
  Transmission Date: 20091009
  Serious: Yes (Other)
  Sender: FDA-Public Use
  Company Number: None

PATIENT
  Age: 22 Year
  Sex: Female
  Weight: 56.6996 kg

DRUGS (1)
  1. SERTRALINE [Suspect]
     Indication: MAJOR DEPRESSION
     Dosage: 50 MG ONCE/DAY PO
     Route: 048
     Dates: start: 20090401, end: 20090615

REACTIONS (4)
  - CONDITION AGGRAVATED [None]
  - DEPRESSION [None]
  - FATIGUE [None]
  - PRODUCT SUBSTITUTION ISSUE [None]
